FAERS Safety Report 19106938 (Version 1)
Quarter: 2021Q2

REPORT INFORMATION
  Report Type: Spontaneous
  Country: FR (occurrence: FR)
  Receive Date: 20210408
  Receipt Date: 20210408
  Transmission Date: 20210717
  Serious: Yes (Other)
  Sender: FDA-Public Use
  Company Number: FR-AUROBINDO-AUR-APL-2021-013938

PATIENT
  Sex: Female

DRUGS (4)
  1. CYTARABINE. [Suspect]
     Active Substance: CYTARABINE
     Indication: BONE MARROW TRANSPLANT
     Dosage: 305 MILLIGRAM
     Route: 042
     Dates: start: 20171118, end: 20171122
  2. ETOPOSIDE. [Suspect]
     Active Substance: ETOPOSIDE
     Indication: BONE MARROW TRANSPLANT
     Dosage: 153 MILLIGRAM
     Route: 042
     Dates: start: 20171118, end: 20171122
  3. CARMUSTINE. [Suspect]
     Active Substance: CARMUSTINE
     Indication: BONE MARROW TRANSPLANT
     Dosage: 460 MILLIGRAM
     Route: 042
     Dates: start: 20171117, end: 20171117
  4. MELPHALAN. [Suspect]
     Active Substance: MELPHALAN
     Indication: BONE MARROW TRANSPLANT
     Dosage: 1, UNK
     Route: 042
     Dates: start: 20171122, end: 20171122

REACTIONS (3)
  - Folliculitis [Recovered/Resolved]
  - Palmar-plantar erythrodysaesthesia syndrome [Recovered/Resolved]
  - Stomatitis [Recovering/Resolving]

NARRATIVE: CASE EVENT DATE: 20171123
